FAERS Safety Report 4635280-0 (Version None)
Quarter: 2005Q2

REPORT INFORMATION
  Report Type: 
  Country: None (occurrence: None)
  Receive Date: 20050411
  Receipt Date: 20050328
  Transmission Date: 20051028
  Serious: Yes (Hospitalization)
  Sender: FDA-Public Use
  Company Number: 2005051049

PATIENT
  Sex: Female
  Weight: 68.0396 kg

DRUGS (1)
  1. NIFEDIPINE [Suspect]
     Indication: HYPERTENSION
     Dosage: SEE IMAGE
     Route: 048
     Dates: start: 19950101

REACTIONS (7)
  - ANXIETY [None]
  - BLOOD CHOLESTEROL ABNORMAL [None]
  - BLOOD PRESSURE INCREASED [None]
  - CORONARY ARTERY SURGERY [None]
  - DEPRESSION [None]
  - DRUG INEFFECTIVE [None]
  - GASTROOESOPHAGEAL REFLUX DISEASE [None]
